FAERS Safety Report 16323636 (Version 1)
Quarter: 2019Q2

REPORT INFORMATION
  Report Type: Spontaneous
  Country: GB (occurrence: GB)
  Receive Date: 20190517
  Receipt Date: 20190517
  Transmission Date: 20190711
  Serious: Yes (Other)
  Sender: FDA-Public Use
  Company Number: GB-TEVA-2019-GB-1049913

PATIENT
  Age: 47 Year
  Sex: Female
  Weight: 55 kg

DRUGS (8)
  1. CLARITHROMYCIN. [Interacting]
     Active Substance: CLARITHROMYCIN
     Dates: start: 20190409
  2. TEGRETOL [Interacting]
     Active Substance: CARBAMAZEPINE
     Dosage: TAKE FOUR TABLETS IN THE MORNING AND FOUR TABLE...
     Dates: start: 20171113
  3. ATENOLOL. [Concomitant]
     Active Substance: ATENOLOL
     Dosage: 1 DOSAGE FORMS DAILY; ONE TO BE TAKEN EACH MORNING-CAN INCREASE TO 2
     Dates: start: 20190115
  4. ZAPAIN [Concomitant]
     Active Substance: ACETAMINOPHEN\CODEINE PHOSPHATE
     Indication: ANALGESIC THERAPY
     Dosage: TAKE ONE OR TWO FOUR TIMES A DAY AS A STRONG PAIN KILLER
     Dates: start: 20190312, end: 20190409
  5. AMOXICILLIN. [Concomitant]
     Active Substance: AMOXICILLIN
     Dosage: 3 DOSAGE FORMS DAILY;
     Dates: start: 20190205, end: 20190212
  6. ONDANSETRON [Concomitant]
     Active Substance: ONDANSETRON
     Dosage: 2 DOSAGE FORMS DAILY;
     Dates: start: 20190312, end: 20190327
  7. CLARITHROMYCIN. [Suspect]
     Active Substance: CLARITHROMYCIN
     Indication: LOWER RESPIRATORY TRACT INFECTION
     Route: 048
     Dates: start: 20190212, end: 20190219
  8. CLOBAZAM. [Concomitant]
     Active Substance: CLOBAZAM
     Dosage: AT NIGHT
     Dates: start: 20150916

REACTIONS (5)
  - Fall [Unknown]
  - Disorientation [Unknown]
  - Toxicity to various agents [Unknown]
  - Nausea [Unknown]
  - Labelled drug-drug interaction medication error [Recovered/Resolved]

NARRATIVE: CASE EVENT DATE: 20190212
